FAERS Safety Report 16177495 (Version 2)
Quarter: 2019Q2

REPORT INFORMATION
  Report Type: Spontaneous
  Country: US (occurrence: US)
  Receive Date: 20190410
  Receipt Date: 20190419
  Transmission Date: 20190711
  Serious: Yes (Hospitalization, Other)
  Sender: FDA-Public Use
  Company Number: US-B.I. PHARMACEUTICALS,INC./RIDGEFIELD-2019-BI-015684

PATIENT
  Age: 76 Year
  Sex: Male

DRUGS (2)
  1. VENTOLIN [Concomitant]
     Active Substance: ALBUTEROL SULFATE
     Indication: CHRONIC OBSTRUCTIVE PULMONARY DISEASE
     Route: 055
  2. SPIRIVA [Suspect]
     Active Substance: TIOTROPIUM BROMIDE MONOHYDRATE
     Indication: CHRONIC OBSTRUCTIVE PULMONARY DISEASE
     Route: 055
     Dates: start: 201801, end: 201902

REACTIONS (5)
  - Sleep apnoea syndrome [Not Recovered/Not Resolved]
  - Dizziness [Recovered/Resolved]
  - Heart rate decreased [Unknown]
  - Pneumonia [Not Recovered/Not Resolved]
  - Oxygen consumption decreased [Not Recovered/Not Resolved]

NARRATIVE: CASE EVENT DATE: 201808
